FAERS Safety Report 8836711 (Version 1)
Quarter: 2012Q4

REPORT INFORMATION
  Report Type: Spontaneous
  Country: US (occurrence: None)
  Receive Date: 20121010
  Receipt Date: 20121010
  Transmission Date: 20130627
  Serious: Yes (Death, Hospitalization)
  Sender: FDA-Public Use
  Company Number: 2012AL000082

PATIENT
  Age: 64 Year
  Sex: Male

DRUGS (17)
  1. PRALATREXATE [Suspect]
     Indication: PERIPHERAL T-CELL LYMPHOMA UNSPECIFIED
     Dates: start: 20120723, end: 20120910
  2. CYCLOPHOSPHAMIDE [Suspect]
     Dates: start: 20120723, end: 20120910
  3. ETOPOSIDE [Suspect]
     Dates: start: 20120723, end: 20120910
  4. VINCRISTINE [Suspect]
     Dates: start: 20120723, end: 20120910
  5. PREDNISONE (PREDNISONE) [Suspect]
     Dates: start: 20120723, end: 20120910
  6. FUROSEMIDE [Concomitant]
  7. METFORMIN [Concomitant]
  8. POTASSIUM CHLORIDE [Concomitant]
  9. VALSARTAN [Concomitant]
  10. METOPROLOL [Concomitant]
  11. ONDANSETRON [Concomitant]
  12. PREDNISONE [Concomitant]
  13. NYSTATIN [Concomitant]
  14. SIMVASTATIN [Concomitant]
  15. ESCITALOPRAM [Concomitant]
  16. FOLIC ACID [Concomitant]
  17. .. [Concomitant]

REACTIONS (15)
  - Sepsis [None]
  - Febrile neutropenia [None]
  - Embolism [None]
  - Pyrexia [None]
  - Malaise [None]
  - Asthenia [None]
  - Fatigue [None]
  - Dizziness [None]
  - Unresponsive to stimuli [None]
  - Head injury [None]
  - Dyspnoea exertional [None]
  - Oedema peripheral [None]
  - Pain in extremity [None]
  - Contusion [None]
  - Petechiae [None]
